FAERS Safety Report 7704547-1 (Version None)
Quarter: 2011Q3

REPORT INFORMATION
  Report Type: 
  Country: None (occurrence: None)
  Receive Date: 20110823
  Receipt Date: 20110805
  Transmission Date: 20111222
  Serious: Yes (Death, Hospitalization)
  Sender: FDA-Public Use
  Company Number: US-GLAXOSMITHKLINE-A0873513A

PATIENT
  Age: 65 Year
  Sex: Female
  Weight: 172.7 kg

DRUGS (6)
  1. LIPITOR [Concomitant]
  2. ZOLOFT [Concomitant]
  3. LOTENSIN [Concomitant]
  4. HYDROCHLOROTHIAZIDE [Concomitant]
  5. AVANDIA [Suspect]
     Indication: DIABETES MELLITUS
     Dosage: 4MG PER DAY
     Route: 048
     Dates: end: 20081220
  6. AMITRIPTYLINE HCL [Concomitant]

REACTIONS (5)
  - DEATH [None]
  - PULMONARY EMBOLISM [None]
  - CARDIOVASCULAR DISORDER [None]
  - DEEP VEIN THROMBOSIS [None]
  - CARDIAC FAILURE CONGESTIVE [None]
